FAERS Safety Report 25148810 (Version 2)
Quarter: 2025Q2

REPORT INFORMATION
  Report Type: Report from Study
  Country: IL (occurrence: IL)
  Receive Date: 20250402
  Receipt Date: 20250514
  Transmission Date: 20250717
  Serious: Yes (Other)
  Sender: ALEXION PHARMACEUTICALS
  Company Number: IL-AstraZeneca-CH-00826005AP

PATIENT
  Age: 83 Year

DRUGS (1)
  1. BENRALIZUMAB [Suspect]
     Active Substance: BENRALIZUMAB
     Indication: Asthma
     Dosage: 30 MILLIGRAM, Q8W

REACTIONS (8)
  - Injection site pain [Recovered/Resolved]
  - Confusional state [Unknown]
  - Device physical property issue [Recovered/Resolved]
  - Injection site haemorrhage [Unknown]
  - Injection site erythema [Unknown]
  - Device delivery system issue [Unknown]
  - Spinal fracture [Unknown]
  - Needle issue [Unknown]
